FAERS Safety Report 23417798 (Version 1)
Quarter: 2024Q1

REPORT INFORMATION
  Report Type: Report from Study
  Country: GB (occurrence: GB)
  Receive Date: 20240118
  Receipt Date: 20240118
  Transmission Date: 20240410
  Serious: Yes (Other)
  Sender: FDA-Public Use
  Company Number: GB-SAMSUNG BIOEPIS-SB-2023-02387

PATIENT
  Age: 38 Year
  Sex: Female

DRUGS (1)
  1. IMRALDI [Suspect]
     Active Substance: ADALIMUMAB
     Indication: Hidradenitis
     Dosage: 40 MG/0.8ML;
     Route: 058
     Dates: start: 20230106

REACTIONS (14)
  - Influenza [Unknown]
  - Cough [Unknown]
  - COVID-19 [Unknown]
  - Surgery [Unknown]
  - Dry throat [Not Recovered/Not Resolved]
  - Nasal dryness [Not Recovered/Not Resolved]
  - Nail disorder [Unknown]
  - Dermatitis contact [Unknown]
  - Condition aggravated [Unknown]
  - Musculoskeletal chest pain [Unknown]
  - Groin pain [Unknown]
  - Chest discomfort [Not Recovered/Not Resolved]
  - Abdominal discomfort [Not Recovered/Not Resolved]
  - Sleep disorder [Unknown]
